FAERS Safety Report 18355280 (Version 1)
Quarter: 2020Q4

REPORT INFORMATION
  Report Type: Spontaneous
  Country: US (occurrence: US)
  Receive Date: 20201006
  Receipt Date: 20201006
  Transmission Date: 20210114
  Serious: Yes (Hospitalization)
  Sender: FDA-Public Use
  Company Number: None

PATIENT
  Age: 42 Year
  Sex: Male
  Weight: 97.2 kg

DRUGS (3)
  1. REMDESIVIR 100MG IV [Suspect]
     Active Substance: REMDESIVIR
     Indication: COVID-19
     Dosage: ?          OTHER FREQUENCY:DAY #1;?
     Route: 042
     Dates: start: 20200930, end: 20201002
  2. REMDESIVIR 100MG IV [Suspect]
     Active Substance: REMDESIVIR
     Dosage: ?          OTHER FREQUENCY:DAY 2-5;?
     Route: 042
  3. DEXAMETHASONE. [Concomitant]
     Active Substance: DEXAMETHASONE

REACTIONS (1)
  - Creatinine renal clearance decreased [None]

NARRATIVE: CASE EVENT DATE: 20201002
